FAERS Safety Report 6125609-9 (Version None)
Quarter: 2009Q1

REPORT INFORMATION
  Report Type: 
  Country: None (occurrence: None)
  Receive Date: 20090320
  Receipt Date: 20090313
  Transmission Date: 20090719
  Serious: Yes (Death)
  Sender: FDA-Public Use
  Company Number: JP-BAYER-200910753BYL

PATIENT
  Age: 22 Year
  Sex: Male

DRUGS (1)
  1. FLUDARA [Suspect]
     Indication: STEM CELL TRANSPLANT
     Route: 042
     Dates: start: 20081222

REACTIONS (2)
  - FUNGAL INFECTION [None]
  - HAEMORRHAGE [None]
